FAERS Safety Report 25282784 (Version 1)
Quarter: 2025Q2

REPORT INFORMATION
  Report Type: Spontaneous
  Country: US (occurrence: None)
  Receive Date: 20250508
  Receipt Date: 20250508
  Transmission Date: 20250717
  Serious: Yes (Other)
  Sender: FDA-CTU
  Company Number: None

PATIENT
  Sex: Female

DRUGS (1)
  1. SPRAVATO [Suspect]
     Active Substance: ESKETAMINE
     Indication: Major depression
     Dosage: 84MG INTRANASALLY ONCE A WEEK UNDER THE SUPERVISION OF A HEALTHCARE PROVIDER.?
     Route: 045
     Dates: start: 20250325

REACTIONS (1)
  - Surgery [None]
